FAERS Safety Report 5803628-7 (Version None)
Quarter: 2008Q3

REPORT INFORMATION
  Report Type: 
  Country: None (occurrence: None)
  Receive Date: 20080708
  Receipt Date: 20080623
  Transmission Date: 20090109
  Serious: Yes (Hospitalization, Other)
  Sender: FDA-Public Use
  Company Number: CA-PFIZER INC-2008055075

PATIENT
  Age: 45 Year
  Sex: Male

DRUGS (6)
  1. NELFINAVIR MESILATE [Suspect]
     Indication: HIV INFECTION
  2. RITUXIMAB [Suspect]
     Indication: CASTLEMAN'S DISEASE
     Dosage: TEXT:1 X ONE DOSE
     Dates: start: 20030801, end: 20031001
  3. LIPOSOMAL FORMULATION OF DOXORUBICIN [Suspect]
     Indication: CASTLEMAN'S DISEASE
     Dosage: TEXT:1 X ONE DOSE
     Dates: start: 20030801, end: 20031001
  4. DEXAMETHASONE [Suspect]
     Indication: CASTLEMAN'S DISEASE
  5. ZIDOVUDINE [Suspect]
     Indication: HIV INFECTION
  6. LAMIVUDINE [Suspect]
     Indication: HIV INFECTION

REACTIONS (4)
  - ABDOMINAL DISCOMFORT [None]
  - ANAEMIA [None]
  - FEBRILE NEUTROPENIA [None]
  - PYREXIA [None]
